FAERS Safety Report 17415242 (Version 1)
Quarter: 2020Q1

REPORT INFORMATION
  Report Type: Spontaneous
  Country: AU (occurrence: AU)
  Receive Date: 20200213
  Receipt Date: 20200213
  Transmission Date: 20200409
  Serious: Yes (Other)
  Sender: FDA-Public Use
  Company Number: AU-AMERICAN REGENT INC-2020000327

PATIENT
  Age: 61 Year
  Sex: Female
  Weight: 71 kg

DRUGS (8)
  1. PLAQUENIL                          /00072602/ [Concomitant]
     Active Substance: HYDROXYCHLOROQUINE DIPHOSPHATE
     Indication: PRODUCT USED FOR UNKNOWN INDICATION
     Dosage: (1 IN 2 D)
     Route: 048
  2. METOPROLOL TARTRATE. [Concomitant]
     Active Substance: METOPROLOL TARTRATE
     Indication: PALPITATIONS
     Dosage: 25 MILLIGRAM, QD 1/2 TABLET DAILY (1 IN 1 D)
     Route: 048
  3. PARACETAMOL [Concomitant]
     Active Substance: ACETAMINOPHEN
     Indication: OSTEOARTHRITIS
     Dosage: 2 DOSAGE FORMS (1 DOSAGE FORMS,AS NEEDED)
     Route: 048
  4. LIPITOR [Concomitant]
     Active Substance: ATORVASTATIN CALCIUM
     Indication: HYPERCHOLESTEROLAEMIA
     Dosage: 1 DOSAGE FORM, QD (1 IN 1 D)
     Route: 048
  5. NEXIUM [Concomitant]
     Active Substance: ESOMEPRAZOLE MAGNESIUM
     Indication: PRODUCT USED FOR UNKNOWN INDICATION
     Dosage: 2 TABLETS BEFORE FOOD FOR 3-4 DAYS AND THEN 1 TABLET DAILY
     Route: 048
  6. DIPROSONE                          /00008502/ [Concomitant]
     Active Substance: BETAMETHASONE SODIUM PHOSPHATE
     Indication: DERMATITIS
     Dosage: UNK, BID
     Route: 061
  7. OLMETEC PLUS [Concomitant]
     Active Substance: HYDROCHLOROTHIAZIDE\OLMESARTAN MEDOXOMIL
     Indication: PRODUCT USED FOR UNKNOWN INDICATION
     Dosage: 40 MG/ 25 MG. (1 DOSAGE FORMS,1 IN 1 D)
     Route: 048
  8. FERINJECT [Suspect]
     Active Substance: FERRIC CARBOXYMALTOSE
     Indication: IRON DEFICIENCY
     Dosage: 100 MILLIGRAM
     Dates: start: 20191119

REACTIONS (13)
  - Anaphylactoid reaction [Unknown]
  - Tendon disorder [Unknown]
  - Spinal stenosis [Unknown]
  - Osteoarthritis [Unknown]
  - Palindromic rheumatism [Unknown]
  - Pain [Recovered/Resolved]
  - Inflammatory marker increased [Unknown]
  - Bursitis [Unknown]
  - Varicose vein [Unknown]
  - Hepatic enzyme increased [Unknown]
  - Hyperparathyroidism [Unknown]
  - Pyrexia [Recovered/Resolved]
  - Muscle rupture [Unknown]

NARRATIVE: CASE EVENT DATE: 2019
